FAERS Safety Report 12180908 (Version 3)
Quarter: 2016Q2

REPORT INFORMATION
  Report Type: Spontaneous
  Country: JP (occurrence: JP)
  Receive Date: 20160315
  Receipt Date: 20160406
  Transmission Date: 20160815
  Serious: Yes (Other)
  Sender: FDA-Public Use
  Company Number: JP-OTSUKA-2016_006236

PATIENT
  Age: 75 Year
  Sex: Male

DRUGS (1)
  1. SAMSCA [Suspect]
     Active Substance: TOLVAPTAN
     Indication: HEPATIC CIRRHOSIS
     Dosage: UNK
     Route: 048

REACTIONS (1)
  - Blood creatinine increased [Unknown]
